FAERS Safety Report 16658300 (Version 1)
Quarter: 2019Q3

REPORT INFORMATION
  Report Type: Spontaneous
  Country: US (occurrence: US)
  Receive Date: 20190801
  Receipt Date: 20190801
  Transmission Date: 20191004
  Serious: Yes (Life-Threatening)
  Sender: FDA-Public Use
  Company Number: None

PATIENT
  Age: 43 Year
  Sex: Male
  Weight: 64.35 kg

DRUGS (5)
  1. ASPRIN [Concomitant]
     Active Substance: ASPIRIN
  2. INVEGA SUSTENNA [Suspect]
     Active Substance: PALIPERIDONE PALMITATE
     Indication: SCHIZOPHRENIA
     Dosage: ?          OTHER FREQUENCY:MONTHLY 236;?
     Route: 030
  3. ZYPREXA 10MG INVEGA SUSTENA [Concomitant]
  4. FIBER [Concomitant]
     Active Substance: PSYLLIUM HUSK
  5. MULTIVITAMIN [Concomitant]
     Active Substance: VITAMINS

REACTIONS (2)
  - Depressed mood [None]
  - Somnolence [None]

NARRATIVE: CASE EVENT DATE: 20190725
